FAERS Safety Report 7263920-9 (Version None)
Quarter: 2011Q1

REPORT INFORMATION
  Report Type: 
  Country: None (occurrence: None)
  Receive Date: 20110130
  Receipt Date: 20101109
  Transmission Date: 20110831
  Serious: No
  Sender: FDA-Public Use
  Company Number: US-ABBOTT-10P-163-0684428-00

PATIENT
  Age: 29 Year
  Sex: Female

DRUGS (5)
  1. HUMIRA [Suspect]
     Indication: CROHN'S DISEASE
     Dates: start: 20081201
  2. PURINOL [Concomitant]
     Indication: PRODUCT USED FOR UNKNOWN INDICATION
     Route: 048
  3. IRON [Concomitant]
     Indication: MINERAL SUPPLEMENTATION
     Route: 048
  4. FOLIC ACID [Concomitant]
     Indication: PRODUCT USED FOR UNKNOWN INDICATION
     Route: 048
  5. LIALDA [Concomitant]
     Indication: CROHN'S DISEASE
     Route: 048

REACTIONS (2)
  - INJECTION SITE PAIN [None]
  - INJECTION SITE HAEMATOMA [None]
